FAERS Safety Report 22643262 (Version 2)
Quarter: 2024Q4

REPORT INFORMATION
  Report Type: Spontaneous
  Country: BR (occurrence: BR)
  Receive Date: 20230627
  Receipt Date: 20241224
  Transmission Date: 20250115
  Serious: No
  Sender: CELLTRION
  Company Number: BR-CELLTRION INC.-2023BR012728

PATIENT

DRUGS (4)
  1. INFLIXIMAB [Suspect]
     Active Substance: INFLIXIMAB
     Indication: Juvenile idiopathic arthritis
     Dosage: UNK (NOT START YET)
     Route: 042
  2. METHOTREXATE SODIUM [Concomitant]
     Active Substance: METHOTREXATE SODIUM
  3. FOLIC ACID [Concomitant]
     Active Substance: FOLIC ACID
  4. CALCIUM [Concomitant]
     Active Substance: CALCIUM

REACTIONS (1)
  - Off label use [Not Recovered/Not Resolved]
